FAERS Safety Report 9993430 (Version 1)
Quarter: 2014Q1

REPORT INFORMATION
  Report Type: Spontaneous
  Country: GB (occurrence: GB)
  Receive Date: 20140310
  Receipt Date: 20140310
  Transmission Date: 20141002
  Serious: Yes (Other)
  Sender: FDA-Public Use
  Company Number: GB-ALLERGAN-1404359US

PATIENT
  Age: 90 Year
  Sex: Female

DRUGS (2)
  1. GANFORT [Suspect]
     Indication: PRODUCT USED FOR UNKNOWN INDICATION
     Dosage: 1 DF, SINGLE
     Route: 047
     Dates: start: 20140221, end: 20140221
  2. VENTOLIN [Concomitant]
     Dosage: 100 ?G, UNK
     Route: 055

REACTIONS (2)
  - Asthma [Unknown]
  - Dyspnoea [Recovered/Resolved]
